FAERS Safety Report 8263453-7 (Version None)
Quarter: 2012Q2

REPORT INFORMATION
  Report Type: 
  Country: None (occurrence: None)
  Receive Date: 20120405
  Receipt Date: 20120328
  Transmission Date: 20120825
  Serious: Yes (Hospitalization)
  Sender: FDA-Public Use
  Company Number: US-ABBOTT-12P-163-0919630-00

PATIENT
  Age: 27 Year
  Sex: Male

DRUGS (6)
  1. HUMIRA [Suspect]
     Indication: COLITIS ULCERATIVE
     Dosage: WEEKLY AS OF 07 MAR 2012
     Dates: start: 20120111, end: 20120307
  2. PREDNISONE [Concomitant]
     Dosage: DAILY WITH 5MG EVERY 5 DAYS OR SO TAPER
  3. PREDNISONE [Concomitant]
     Dosage: DAILY, CURRENTLY
  4. PENTASA [Concomitant]
     Indication: PRODUCT USED FOR UNKNOWN INDICATION
  5. PREDNISONE [Concomitant]
     Indication: PRODUCT USED FOR UNKNOWN INDICATION
     Dosage: DAILY
  6. HUMIRA [Suspect]
     Dates: start: 20120307

REACTIONS (6)
  - HYPERHIDROSIS [None]
  - NAUSEA [None]
  - CHILLS [None]
  - HEADACHE [None]
  - COLITIS [None]
  - PYREXIA [None]
